FAERS Safety Report 8450544-0 (Version None)
Quarter: 2012Q2

REPORT INFORMATION
  Report Type: 
  Country: None (occurrence: None)
  Receive Date: 20120605
  Receipt Date: 20120529
  Transmission Date: 20120825
  Serious: Yes (Death)
  Sender: FDA-Public Use
  Company Number: 2012032497

PATIENT
  Age: 81 Year
  Sex: Male

DRUGS (4)
  1. ALBUMINAR-5 [Suspect]
     Dosage: 12.5G/250 ML
     Route: 042
  2. DOBUPUM (DOBUTAMINE HYDROCHLORIDE) [Concomitant]
  3. DOPAMINE HYDROCHLORIDE [Concomitant]
  4. HESPANDER (HESPANDER) [Concomitant]

REACTIONS (2)
  - DRUG HYPERSENSITIVITY [None]
  - HYPOTENSION [None]
